FAERS Safety Report 5362063-9 (Version None)
Quarter: 2007Q2

REPORT INFORMATION
  Report Type: 
  Country: None (occurrence: None)
  Receive Date: 20070619
  Receipt Date: 20070608
  Transmission Date: 20071010
  Serious: Yes (Death)
  Sender: FDA-Public Use
  Company Number: GB-AMGEN-US229441

PATIENT
  Age: 63 Year
  Sex: Male
  Weight: 100 kg

DRUGS (5)
  1. ENBREL [Suspect]
     Indication: RHEUMATOID ARTHRITIS
     Dosage: 50MG, FREQUENCY UNKNOWN
     Route: 058
     Dates: end: 20070520
  2. OMEPRAZOLE [Concomitant]
     Dosage: 10MG, FREQUENCY UNKNOWN
     Route: 048
  3. COD-LIVER [Concomitant]
     Dosage: UNKNOWN
  4. ADCAL D3 [Concomitant]
     Route: 048
  5. ALENDRONIC ACID [Concomitant]
     Route: 048

REACTIONS (1)
  - PANCREATITIS ACUTE [None]
